FAERS Safety Report 25264542 (Version 1)
Quarter: 2025Q2

REPORT INFORMATION
  Report Type: Spontaneous
  Country: US (occurrence: None)
  Receive Date: 20250502
  Receipt Date: 20250502
  Transmission Date: 20250717
  Serious: Yes (Other)
  Sender: FDA-CTU
  Company Number: None

PATIENT
  Age: 81 Year
  Sex: Male
  Weight: 68.49 kg

DRUGS (9)
  1. SPIRONOLACTONE [Suspect]
     Active Substance: SPIRONOLACTONE
     Indication: Oedema
     Dosage: OTHER QUANTITY : 1 PILL;?FREQUENCY : DAILY;?
     Route: 048
     Dates: start: 20220202, end: 20230326
  2. External Cather - Mens Liberty [Concomitant]
  3. DEVICE [Concomitant]
     Active Substance: DEVICE
  4. TORSEMIDE [Concomitant]
     Active Substance: TORSEMIDE
  5. NM-6603 [Concomitant]
     Active Substance: NM-6603
  6. STOOL SOFTENER (DOCUSATE) [Concomitant]
     Active Substance: DOCUSATE
  7. Calcum + 500 [Concomitant]
  8. VITAMINS [Concomitant]
     Active Substance: VITAMINS
  9. CHONDROITIN SULFATE (BOVINE)\GLUCOSAMINE HYDROCHLORIDE [Concomitant]
     Active Substance: CHONDROITIN SULFATE (BOVINE)\GLUCOSAMINE HYDROCHLORIDE

REACTIONS (2)
  - Penile ulceration [None]
  - Pain [None]

NARRATIVE: CASE EVENT DATE: 20250208
